FAERS Safety Report 5080377-7 (Version None)
Quarter: 2006Q3

REPORT INFORMATION
  Report Type: 
  Country: None (occurrence: None)
  Receive Date: 20060815
  Receipt Date: 20060803
  Transmission Date: 20061208
  Serious: Yes (Other)
  Sender: FDA-Public Use
  Company Number: US-ROCHE-458443

PATIENT
  Weight: 86.2 kg

DRUGS (7)
  1. ACCUTANE [Suspect]
     Indication: DRUG USE FOR UNKNOWN INDICATION
     Route: 048
     Dates: start: 19860615, end: 19860615
  2. ACCUTANE [Suspect]
     Indication: ACNE
     Route: 048
     Dates: start: 20060124, end: 20060608
  3. NEURONTIN [Concomitant]
  4. NORCO [Concomitant]
  5. DEPAKOTE [Concomitant]
  6. DITROPAN [Concomitant]
  7. TESTOSTERONE [Concomitant]

REACTIONS (1)
  - DECUBITUS ULCER [None]
